FAERS Safety Report 16737933 (Version 1)
Quarter: 2019Q3

REPORT INFORMATION
  Report Type: Report from Study
  Country: None (occurrence: US)
  Receive Date: 20190824
  Receipt Date: 20190824
  Transmission Date: 20191005
  Serious: Yes (Other)
  Sender: FDA-Public Use
  Company Number: US-ABBVIE-19K-163-2688939-00

PATIENT
  Sex: Female

DRUGS (1)
  1. HUMIRA [Suspect]
     Active Substance: ADALIMUMAB
     Indication: RHEUMATOID ARTHRITIS
     Dosage: CITRATE FREE
     Route: 058

REACTIONS (19)
  - Corneal lesion [Recovered/Resolved]
  - Arthralgia [Unknown]
  - Eye inflammation [Unknown]
  - Chills [Recovered/Resolved]
  - Arthritis [Not Recovered/Not Resolved]
  - Exostosis [Recovering/Resolving]
  - Gastric disorder [Recovered/Resolved]
  - Osteoarthritis [Not Recovered/Not Resolved]
  - Intervertebral disc protrusion [Recovering/Resolving]
  - Nerve compression [Recovering/Resolving]
  - Scar [Unknown]
  - Herpes zoster [Recovering/Resolving]
  - Fear [Unknown]
  - Vision blurred [Unknown]
  - Pain [Unknown]
  - Skin discolouration [Unknown]
  - Joint swelling [Unknown]
  - Thrombosis [Unknown]
  - Pyrexia [Recovered/Resolved]

NARRATIVE: CASE EVENT DATE: 201901
